FAERS Safety Report 21526131 (Version 1)
Quarter: 2022Q4

REPORT INFORMATION
  Report Type: Spontaneous
  Country: CN (occurrence: CN)
  Receive Date: 20221031
  Receipt Date: 20221031
  Transmission Date: 20230113
  Serious: Yes (Other)
  Sender: FDA-Public Use
  Company Number: CN-BAXTER-2022BAX022624

PATIENT
  Age: 75 Year
  Sex: Female

DRUGS (7)
  1. METRONIDAZOLE [Suspect]
     Active Substance: METRONIDAZOLE
     Indication: Amoebiasis
     Dosage: 500 MG (Q8H)
     Route: 042
  2. MOXIFLOXACIN [Concomitant]
     Active Substance: MOXIFLOXACIN
     Indication: Tuberculous pleurisy
     Dosage: MOXIFLOXACIN SODIUM CHLORIDE INJECTION; 0.4 G, IVGTT, QD
     Route: 042
  3. SODIUM CHLORIDE [Concomitant]
     Active Substance: SODIUM CHLORIDE
     Indication: Tuberculous pleurisy
     Dosage: MOXIFLOXACIN SODIUM CHLORIDE INJECTION; 0.4 G, IVGTT, QD
     Route: 042
  4. ISONIAZID [Concomitant]
     Active Substance: ISONIAZID
     Indication: Tuberculous pleurisy
     Dosage: 0.3 G, P.O. QD
     Route: 048
  5. RIFAMPIN [Concomitant]
     Active Substance: RIFAMPIN
     Indication: Tuberculous pleurisy
     Dosage: 0.45GMG, P.O. QD
     Route: 048
  6. PYRAZINAMIDE [Concomitant]
     Active Substance: PYRAZINAMIDE
     Indication: Tuberculous pleurisy
     Dosage: 1.25  G, P.O. QD
     Route: 048
  7. ETHAMBUTOL HYDROCHLORIDE [Concomitant]
     Active Substance: ETHAMBUTOL HYDROCHLORIDE
     Indication: Tuberculous pleurisy
     Dosage: 0.75  G, P.O. QD
     Route: 048

REACTIONS (6)
  - Loss of consciousness [Unknown]
  - Psychiatric symptom [Unknown]
  - Drug ineffective [Unknown]
  - Somnolence [Unknown]
  - Nausea [Unknown]
  - Vomiting [Unknown]
